FAERS Safety Report 6072041-2 (Version None)
Quarter: 2009Q1

REPORT INFORMATION
  Report Type: 
  Country: None (occurrence: None)
  Receive Date: 20090205
  Receipt Date: 20090205
  Transmission Date: 20090719
  Serious: No
  Sender: FDA-Public Use
  Company Number: None

PATIENT
  Sex: Female
  Weight: 65.7716 kg

DRUGS (1)
  1. GABAPENTIN [Suspect]
     Indication: EPILEPSY
     Dosage: 600MG TWICE DAILY PO
     Route: 048

REACTIONS (3)
  - DIZZINESS [None]
  - FEELING ABNORMAL [None]
  - PRODUCT QUALITY ISSUE [None]
